FAERS Safety Report 24721525 (Version 1)
Quarter: 2024Q4

REPORT INFORMATION
  Report Type: Spontaneous
  Country: US (occurrence: None)
  Receive Date: 20241210
  Receipt Date: 20241210
  Transmission Date: 20250114
  Serious: Yes (Hospitalization)
  Sender: Public
  Company Number: None

PATIENT
  Age: 64 Year
  Sex: Male

DRUGS (1)
  1. IMATINIB MESYLATE [Suspect]
     Active Substance: IMATINIB MESYLATE
     Indication: Metastases to central nervous system
     Dosage: FREQUENCY : DAILY;?

REACTIONS (6)
  - Rash [None]
  - Bone cancer [None]
  - Nausea [None]
  - Haemoglobin decreased [None]
  - Blood iron decreased [None]
  - Transfusion [None]
